FAERS Safety Report 18460329 (Version 1)
Quarter: 2020Q4

REPORT INFORMATION
  Report Type: Spontaneous
  Country: US (occurrence: US)
  Receive Date: 20201103
  Receipt Date: 20201103
  Transmission Date: 20210114
  Serious: Yes (Other)
  Sender: FDA-Public Use
  Company Number: US-BAXTER-2020BAX022088

PATIENT

DRUGS (4)
  1. PRISMASOL BGK2/0 [Suspect]
     Active Substance: DEXTROSE\LACTIC ACID\MAGNESIUM CL\POTASSIUM CL\SODIUM BICARBONATE\SODIUM CL
     Route: 010
     Dates: start: 20201024
  2. PRISMASOL BGK2/0 [Suspect]
     Active Substance: DEXTROSE\LACTIC ACID\MAGNESIUM CL\POTASSIUM CL\SODIUM BICARBONATE\SODIUM CL
     Indication: RENAL REPLACEMENT THERAPY
     Route: 010
     Dates: end: 20201024
  3. ACD-A [Suspect]
     Active Substance: ANHYDROUS CITRIC ACID\DEXTROSE MONOHYDRATE\SODIUM CITRATE
     Route: 010
     Dates: start: 20201024
  4. ACD-A [Suspect]
     Active Substance: ANHYDROUS CITRIC ACID\DEXTROSE MONOHYDRATE\SODIUM CITRATE
     Indication: RENAL REPLACEMENT THERAPY
     Route: 010
     Dates: end: 20201024

REACTIONS (2)
  - Hypothermia [Unknown]
  - Device temperature issue [Unknown]

NARRATIVE: CASE EVENT DATE: 20201024
